FAERS Safety Report 9738767 (Version 2)
Quarter: 2014Q1

REPORT INFORMATION
  Report Type: Spontaneous
  Country: GB (occurrence: GB)
  Receive Date: 20131209
  Receipt Date: 20140211
  Transmission Date: 20141002
  Serious: Yes (Death, Hospitalization)
  Sender: FDA-Public Use
  Company Number: GB-ACCORD-020532

PATIENT
  Age: 47 Year
  Sex: Female
  Weight: 157 kg

DRUGS (15)
  1. MYCOPHENOLIC ACID [Suspect]
     Indication: INTERSTITIAL LUNG DISEASE
     Route: 048
     Dates: start: 20130515, end: 20130829
  2. CODEINE [Concomitant]
  3. SERETIDE [Concomitant]
  4. STELARA [Suspect]
     Indication: PSORIASIS
     Dosage: THE 90 MILLIGRAM DOSE WAS INITIATED DUE TO PATIENT WEIGHING OVER 100KG.
     Route: 058
     Dates: start: 20130717, end: 20130823
  5. PREDNISOLONE [Suspect]
     Indication: PRODUCT USED FOR UNKNOWN INDICATION
     Dosage: UP TO 30MG ONCE DAILY (VARYING DOSES DEPENDING ON SEVERITY OF LUNG DISEASE).
     Route: 048
     Dates: start: 201202
  6. PROPRANOLOL [Concomitant]
  7. LEVOTHYROXINE [Concomitant]
  8. URSODEOXYCHOLATE SODIUM/URSODEOXYCHOLIC ACID [Concomitant]
  9. ALENDRONATE SODIUM/ALENDRONIC ACID [Concomitant]
  10. KETOROLAC [Concomitant]
  11. MAXITROL [Concomitant]
  12. CALCICHEW D3 [Concomitant]
  13. OMEPRAZOLE [Concomitant]
  14. NAPROXEN [Concomitant]
  15. SERTRALINE [Concomitant]

REACTIONS (9)
  - Status epilepticus [Fatal]
  - Convulsion [Not Recovered/Not Resolved]
  - Brain oedema [Not Recovered/Not Resolved]
  - Candida infection [Not Recovered/Not Resolved]
  - Septic arthritis staphylococcal [Not Recovered/Not Resolved]
  - Respiratory failure [Not Recovered/Not Resolved]
  - Encephalitis [Fatal]
  - Pneumonia [Unknown]
  - Off label use [Unknown]
